FAERS Safety Report 24263286 (Version 1)
Quarter: 2024Q3

REPORT INFORMATION
  Report Type: Spontaneous
  Country: US (occurrence: None)
  Receive Date: 20240828
  Receipt Date: 20240828
  Transmission Date: 20241017
  Serious: No
  Sender: Public
  Company Number: None

PATIENT
  Age: 18 Year
  Sex: Male
  Weight: 103.1 kg

DRUGS (1)
  1. GAMUNEX-C [Suspect]
     Active Substance: HUMAN IMMUNOGLOBULIN G
     Indication: Immunodeficiency
     Dosage: FREQUENCY : MONTHLY;?
     Route: 041
     Dates: start: 20240827, end: 20240827

REACTIONS (4)
  - Product preparation error [None]
  - Incorrect dose administered [None]
  - Device issue [None]
  - Product administration error [None]

NARRATIVE: CASE EVENT DATE: 20240827
